FAERS Safety Report 6570814-0 (Version None)
Quarter: 2010Q1

REPORT INFORMATION
  Report Type: 
  Country: None (occurrence: None)
  Receive Date: 20100202
  Receipt Date: 20100202
  Transmission Date: 20100710
  Serious: Yes (Other)
  Sender: FDA-Public Use
  Company Number: None

PATIENT
  Age: 2 Month

DRUGS (1)
  1. SYNAGIS [Suspect]
     Dosage: IM
     Route: 030

REACTIONS (1)
  - INJECTION SITE PAPULE [None]
